FAERS Safety Report 6076223-5 (Version None)
Quarter: 2009Q1

REPORT INFORMATION
  Report Type: 
  Country: None (occurrence: None)
  Receive Date: 20090212
  Receipt Date: 20090204
  Transmission Date: 20090719
  Serious: Yes (Hospitalization, Disabling)
  Sender: FDA-Public Use
  Company Number: RU-ROCHE-608409

PATIENT
  Sex: Male
  Weight: 76 kg

DRUGS (7)
  1. CAPECITABINE [Suspect]
     Indication: GASTRIC CANCER
     Dosage: FREQUENCY: D1-D14 Q3W
     Route: 048
     Dates: start: 20080527, end: 20080708
  2. CAPECITABINE [Suspect]
     Dosage: ON DAYS 1 - 14 Q 3 W
     Route: 048
     Dates: start: 20080731
  3. CAPECITABINE [Suspect]
     Dosage: THERAPY TEMPORARILY INTERRUPTED. FREQUENCY REPORTED AS D1-14 EVERY 3 WEEKS
     Route: 048
     Dates: end: 20090114
  4. BLINDED BEVACIZUMAB [Suspect]
     Indication: GASTRIC CANCER
     Dosage: DOSAGE FORM REPORTED AS INFUSION. DOSE BLINDED. LAST DOSE RECEIVED ON 18 JUNE 2008.
     Route: 042
     Dates: start: 20080527, end: 20080708
  5. BLINDED BEVACIZUMAB [Suspect]
     Route: 042
     Dates: start: 20080731, end: 20090112
  6. CISPLATIN [Suspect]
     Indication: GASTRIC CANCER
     Dosage: LAST DOSE RECEIVED ON 18 JUNE 2008
     Route: 042
     Dates: start: 20080527, end: 20080708
  7. CISPLATIN [Suspect]
     Dosage: DOSAGE FORM REPORTED AS: INFUSION.
     Route: 042
     Dates: start: 20080731, end: 20081015

REACTIONS (1)
  - RETINOPATHY [None]
